FAERS Safety Report 17227218 (Version 4)
Quarter: 2020Q2

REPORT INFORMATION
  Report Type: Report from Study
  Country: None (occurrence: US)
  Receive Date: 20200103
  Receipt Date: 20200624
  Transmission Date: 20200713
  Serious: Yes (Hospitalization, Other)
  Sender: FDA-Public Use
  Company Number: US-ABBVIE-19K-163-2932270-00

PATIENT
  Age: 55 Year
  Sex: Female

DRUGS (1)
  1. HUMIRA [Suspect]
     Active Substance: ADALIMUMAB
     Indication: ANKYLOSING SPONDYLITIS
     Route: 058
     Dates: start: 20190914

REACTIONS (30)
  - Weight increased [Not Recovered/Not Resolved]
  - Migraine [Unknown]
  - Vision blurred [Unknown]
  - Musculoskeletal pain [Not Recovered/Not Resolved]
  - Rotator cuff syndrome [Recovering/Resolving]
  - Dysstasia [Recovering/Resolving]
  - Fatigue [Not Recovered/Not Resolved]
  - Rash papular [Unknown]
  - Glaucoma [Not Recovered/Not Resolved]
  - General physical health deterioration [Recovering/Resolving]
  - Weight decreased [Unknown]
  - Polyarthritis [Unknown]
  - Back pain [Recovering/Resolving]
  - Loss of personal independence in daily activities [Recovering/Resolving]
  - Joint swelling [Recovered/Resolved]
  - Joint stiffness [Recovering/Resolving]
  - Urticaria [Recovered/Resolved]
  - Injection site erythema [Recovered/Resolved]
  - Joint range of motion decreased [Recovering/Resolving]
  - Injection site pain [Recovered/Resolved]
  - Scar [Unknown]
  - Arthralgia [Recovering/Resolving]
  - Discomfort [Recovering/Resolving]
  - Sensitive skin [Recovered/Resolved]
  - Joint swelling [Recovering/Resolving]
  - Menstrual disorder [Unknown]
  - Sinus congestion [Not Recovered/Not Resolved]
  - Pyrexia [Recovered/Resolved]
  - Musculoskeletal stiffness [Recovering/Resolving]
  - Neck pain [Recovering/Resolving]

NARRATIVE: CASE EVENT DATE: 2019
